FAERS Safety Report 17039014 (Version 1)
Quarter: 2019Q4

REPORT INFORMATION
  Report Type: Spontaneous
  Country: BR (occurrence: BR)
  Receive Date: 20191115
  Receipt Date: 20191115
  Transmission Date: 20200122
  Serious: Yes (Hospitalization, Other)
  Sender: FDA-Public Use
  Company Number: BR-NAPPMUNDI-GBR-2019-0072801

PATIENT
  Age: 51 Year
  Sex: Male

DRUGS (2)
  1. OXYCONTIN [Suspect]
     Active Substance: OXYCODONE HYDROCHLORIDE
     Indication: PAIN
     Dosage: 40 MG, Q8H (2 TABLETS OF 20MG)
     Route: 048
     Dates: start: 20191019
  2. OXYCONTIN [Suspect]
     Active Substance: OXYCODONE HYDROCHLORIDE
     Dosage: 20 MG, Q8H (1 TABLET OF 20MG)
     Route: 048
     Dates: start: 20191018

REACTIONS (5)
  - Inadequate analgesia [Unknown]
  - Endotracheal intubation [Unknown]
  - Biliary tract infection [Unknown]
  - Spinal disorder [Unknown]
  - Septic shock [Unknown]

NARRATIVE: CASE EVENT DATE: 20191026
